FAERS Safety Report 4614906-1 (Version None)
Quarter: 2005Q1

REPORT INFORMATION
  Report Type: 
  Country: None (occurrence: None)
  Receive Date: 20050322
  Receipt Date: 20050218
  Transmission Date: 20050727
  Serious: Yes (Hospitalization)
  Sender: FDA-Public Use
  Company Number: JP-MERCK-0502USA03028

PATIENT
  Age: 24 Year
  Sex: Female

DRUGS (5)
  1. PEPCID RPD [Suspect]
     Indication: GASTRITIS
     Route: 048
     Dates: start: 20050212, end: 20050218
  2. PEPCID RPD [Suspect]
     Indication: REFLUX OESOPHAGITIS
     Route: 048
     Dates: start: 20050212, end: 20050218
  3. STROCAIN (OXETHAZAINE HYDROCHLORIDE) [Concomitant]
     Route: 048
     Dates: start: 20050212, end: 20050214
  4. DOGMATYL [Concomitant]
     Route: 048
     Dates: start: 20050212, end: 20050214
  5. PRIMPERAN TAB [Concomitant]
     Route: 048
     Dates: start: 20050212, end: 20050214

REACTIONS (3)
  - HAEMATURIA [None]
  - HEPATIC FUNCTION ABNORMAL [None]
  - RHABDOMYOLYSIS [None]
